FAERS Safety Report 7363019-7 (Version None)
Quarter: 2011Q1

REPORT INFORMATION
  Report Type: 
  Country: None (occurrence: None)
  Receive Date: 20110321
  Receipt Date: 20110315
  Transmission Date: 20110831
  Serious: Yes (Other)
  Sender: FDA-Public Use
  Company Number: US-PFIZER INC-2011057391

PATIENT
  Sex: Female
  Weight: 51.247 kg

DRUGS (1)
  1. ADVIL LIQUI-GELS [Suspect]
     Indication: DYSMENORRHOEA
     Dosage: 1-2 TABLETS AS NEEDED
     Route: 048

REACTIONS (1)
  - SWELLING FACE [None]
